FAERS Safety Report 4953727-7 (Version None)
Quarter: 2006Q1

REPORT INFORMATION
  Report Type: 
  Country: None (occurrence: None)
  Receive Date: 20060323
  Receipt Date: 20060323
  Transmission Date: 20060701
  Serious: Yes (Other)
  Sender: FDA-Public Use
  Company Number: None

PATIENT
  Age: 60 Year
  Sex: Female
  Weight: 86.1834 kg

DRUGS (1)
  1. PREDNISONE TAB [Suspect]
     Indication: PULMONARY FIBROSIS
     Dosage: 10 MG X 2 DAILY PO
     Route: 048
     Dates: start: 20051201, end: 20060322

REACTIONS (1)
  - ALOPECIA [None]
